FAERS Safety Report 4521323-1 (Version None)
Quarter: 2004Q4

REPORT INFORMATION
  Report Type: 
  Country: None (occurrence: None)
  Receive Date: 20041208
  Receipt Date: 20041014
  Transmission Date: 20050328
  Serious: Yes (Hospitalization)
  Sender: FDA-Public Use
  Company Number: PHRM2004FR03141

PATIENT
  Age: 32 Year
  Sex: Female
  Weight: 52 kg

DRUGS (1)
  1. METHERGINE [Suspect]
     Indication: POSTPARTUM HAEMORRHAGE
     Dosage: .25 MG, ONCE/SINGLE
     Route: 048
     Dates: start: 20041014, end: 20041014

REACTIONS (6)
  - FATIGUE [None]
  - FEELING COLD [None]
  - FORMICATION [None]
  - HEART RATE INCREASED [None]
  - PARAESTHESIA [None]
  - TREMOR [None]
